FAERS Safety Report 12520196 (Version 1)
Quarter: 2016Q2

REPORT INFORMATION
  Report Type: Spontaneous
  Country: US (occurrence: US)
  Receive Date: 20160630
  Receipt Date: 20160630
  Transmission Date: 20160815
  Serious: No
  Sender: FDA-Public Use
  Company Number: US-BAYER-2016-123368

PATIENT
  Sex: Male
  Weight: 92.25 kg

DRUGS (5)
  1. IBUPROFEN [IBUPROFEN] [Concomitant]
     Active Substance: IBUPROFEN
     Dosage: 200 MG, UNK
  2. DILANTIN [Concomitant]
     Active Substance: PHENYTOIN
     Dosage: 100 MG, BID
  3. ALEVE [Suspect]
     Active Substance: NAPROXEN SODIUM
  4. ASPIRINE [Concomitant]
     Active Substance: ASPIRIN
     Dosage: 1 DF, QD
  5. TAMSULOSIN [Concomitant]
     Active Substance: TAMSULOSIN
     Dosage: 0.4 MG, QD

REACTIONS (1)
  - Pruritus [None]
